FAERS Safety Report 21370981 (Version 1)
Quarter: 2022Q3

REPORT INFORMATION
  Report Type: Spontaneous
  Country: DE (occurrence: DE)
  Receive Date: 20220923
  Receipt Date: 20220923
  Transmission Date: 20221027
  Serious: Yes (Hospitalization, Other)
  Sender: FDA-Public Use
  Company Number: DE-ADRED-07700-02

PATIENT
  Age: 46 Year
  Sex: Female
  Weight: 81 kg

DRUGS (14)
  1. BEVACIZUMAB [Suspect]
     Active Substance: BEVACIZUMAB
     Indication: Product used for unknown indication
     Dosage: SCHEMA
     Route: 065
  2. CARBOPLATIN [Suspect]
     Active Substance: CARBOPLATIN
     Indication: Product used for unknown indication
     Dosage: SCHEMA
     Route: 065
  3. PEMETREXED [Suspect]
     Active Substance: PEMETREXED
     Indication: Product used for unknown indication
     Dosage: SCHEMA
     Route: 065
  4. ASPIRIN [Concomitant]
     Active Substance: ASPIRIN
     Dosage: 100 MILLIGRAM
  5. OXYCODONE [Concomitant]
     Active Substance: OXYCODONE
     Dosage: 20 MILLIGRAM
  6. LEVOTHYROXINE SODIUM [Concomitant]
     Active Substance: LEVOTHYROXINE SODIUM
     Dosage: 100 MICROGRAM
  7. AMITRIPTYLINE [Concomitant]
     Active Substance: AMITRIPTYLINE
     Dosage: 10 MILLIGRAM
  8. FOLIC ACID [Concomitant]
     Active Substance: FOLIC ACID
     Dosage: 0.4 MILLIGRAM
  9. EBASTINE [Concomitant]
     Active Substance: EBASTINE
     Dosage: 10 MILLIGRAM
  10. ASCORBIC ACID [Concomitant]
     Active Substance: ASCORBIC ACID
     Dosage: 0-1-0-0
  11. HYDROMORPHONE [Concomitant]
     Active Substance: HYDROMORPHONE
     Dosage: 2.6 MILLIGRAM
  12. NALOXONE HYDROCHLORIDE\OXYCODONE HYDROCHLORIDE [Concomitant]
     Active Substance: NALOXONE HYDROCHLORIDE\OXYCODONE HYDROCHLORIDE
     Dosage: 10|5 MG, 1-0-1-0
  13. PANTOPRAZOLE SODIUM [Concomitant]
     Active Substance: PANTOPRAZOLE SODIUM
     Dosage: 40 MILLIGRAM
  14. POLYETHYLENE GLYCOLS [Concomitant]
     Active Substance: POLYETHYLENE GLYCOLS
     Dosage: BEDARF

REACTIONS (7)
  - Systemic infection [Unknown]
  - General physical health deterioration [Unknown]
  - Abdominal pain upper [Unknown]
  - Condition aggravated [Unknown]
  - Vertigo [Unknown]
  - Pyrexia [Unknown]
  - Anaemia [Unknown]
